FAERS Safety Report 8559575-3 (Version None)
Quarter: 2012Q3

REPORT INFORMATION
  Report Type: 
  Country: None (occurrence: None)
  Receive Date: 20120727
  Receipt Date: 20120727
  Transmission Date: 20120928
  Serious: No
  Sender: FDA-Public Use
  Company Number: None

PATIENT
  Age: 60 Year
  Sex: Male
  Weight: 89.8122 kg

DRUGS (1)
  1. DILAUDID [Suspect]
     Indication: PAIN
     Dosage: 3.9 MG 0.5MGX1; 0-.85MG/HX 4 IV BOLUS
     Route: 040
     Dates: start: 20111103, end: 20111103

REACTIONS (2)
  - UNRESPONSIVE TO STIMULI [None]
  - RESPIRATORY RATE DECREASED [None]
